FAERS Safety Report 20199183 (Version 1)
Quarter: 2021Q4

REPORT INFORMATION
  Report Type: Spontaneous
  Country: US (occurrence: None)
  Receive Date: 20211216
  Receipt Date: 20211216
  Transmission Date: 20220304
  Serious: Yes (Life-Threatening)
  Sender: FDA-Public Use
  Company Number: None

PATIENT
  Age: 70 Year
  Sex: Male

DRUGS (1)
  1. GADOPENTETATE DIMEGLUMINE [Suspect]
     Active Substance: GADOPENTETATE DIMEGLUMINE
     Indication: Imaging procedure
     Dosage: FREQUENCY : ONCE;?
     Route: 042
     Dates: start: 20211207, end: 20211207

REACTIONS (3)
  - Oxygen saturation decreased [None]
  - Contrast media allergy [None]
  - Anaphylactic reaction [None]

NARRATIVE: CASE EVENT DATE: 20211207
